FAERS Safety Report 4633608-9 (Version None)
Quarter: 2005Q2

REPORT INFORMATION
  Report Type: 
  Country: None (occurrence: None)
  Receive Date: 20050412
  Receipt Date: 20050412
  Transmission Date: 20051028
  Serious: Yes (Life-Threatening, Hospitalization)
  Sender: FDA-Public Use
  Company Number: None

PATIENT
  Age: 83 Year
  Sex: Male
  Weight: 88.9 kg

DRUGS (8)
  1. PROPAFENONE [Suspect]
  2. ISOSORBIDE MONONITRATE [Concomitant]
  3. SIMVASTATIN [Concomitant]
  4. FOSINOPRIL [Concomitant]
  5. NITROGLYCERIN [Concomitant]
  6. NITROGLYCERIN TAB [Concomitant]
  7. PSYLLIUM MUCILLOID POWD [Concomitant]
  8. IBUPROFEN [Concomitant]

REACTIONS (2)
  - ARRHYTHMIA [None]
  - MYOCARDIAL INFARCTION [None]
